FAERS Safety Report 8141487-0 (Version None)
Quarter: 2012Q1

REPORT INFORMATION
  Report Type: 
  Country: None (occurrence: None)
  Receive Date: 20120216
  Receipt Date: 20120210
  Transmission Date: 20120608
  Serious: Yes (Other)
  Sender: FDA-Public Use
  Company Number: CH-ROCHE-1033128

PATIENT
  Sex: Female
  Weight: 76 kg

DRUGS (4)
  1. MABTHERA [Suspect]
     Indication: RHEUMATOID ARTHRITIS
     Route: 042
     Dates: start: 20071101
  2. STEROIDS - UNKNOWN TYPE [Concomitant]
     Indication: RHEUMATOID ARTHRITIS
  3. ARAVA [Concomitant]
     Indication: RHEUMATOID ARTHRITIS
     Route: 065
     Dates: start: 20111001
  4. PREDNISOLONE [Concomitant]
     Indication: RHEUMATOID ARTHRITIS
     Dosage: DOSE REPORTED AS 5-7.5 MG
     Dates: start: 20110701

REACTIONS (1)
  - PERICARDITIS [None]
